FAERS Safety Report 8384851-7 (Version None)
Quarter: 2012Q2

REPORT INFORMATION
  Report Type: 
  Country: None (occurrence: None)
  Receive Date: 20120524
  Receipt Date: 20120521
  Transmission Date: 20120825
  Serious: Yes (Other)
  Sender: FDA-Public Use
  Company Number: US-PFIZER INC-2012103306

PATIENT
  Age: 65 Year
  Sex: Female

DRUGS (2)
  1. ARICEPT [Interacting]
     Indication: DEMENTIA ALZHEIMER'S TYPE
     Dosage: UNK
  2. DETROL [Suspect]
     Indication: URINARY INCONTINENCE
     Dosage: UNK

REACTIONS (7)
  - DRUG INTERACTION [None]
  - COGNITIVE DISORDER [None]
  - DEMENTIA [None]
  - APHAGIA [None]
  - LACK OF SPONTANEOUS SPEECH [None]
  - EMOTIONAL POVERTY [None]
  - MENTAL STATUS CHANGES [None]
